FAERS Safety Report 21339185 (Version 1)
Quarter: 2022Q3

REPORT INFORMATION
  Report Type: Spontaneous
  Country: US (occurrence: US)
  Receive Date: 20220915
  Receipt Date: 20220915
  Transmission Date: 20221027
  Serious: Yes (Hospitalization, Other)
  Sender: FDA-Public Use
  Company Number: US-UNITED THERAPEUTICS-UNT-2022-020861

PATIENT
  Age: 45 Year
  Sex: Female

DRUGS (2)
  1. REMODULIN [Suspect]
     Active Substance: TREPROSTINIL
     Indication: Pulmonary arterial hypertension
     Dosage: UNK, CONTINUING
     Route: 058
     Dates: start: 20210405
  2. REMODULIN [Suspect]
     Active Substance: TREPROSTINIL
     Dosage: 0.1081 ?G/KG, CONTINUING
     Route: 058

REACTIONS (6)
  - Asthma [Unknown]
  - Pulmonary arterial hypertension [Unknown]
  - Blood iron abnormal [Unknown]
  - Oxygen saturation decreased [Unknown]
  - Infusion site pain [Unknown]
  - Infusion site infection [Unknown]

NARRATIVE: CASE EVENT DATE: 20220818
